FAERS Safety Report 17240425 (Version 1)
Quarter: 2020Q1

REPORT INFORMATION
  Report Type: Other
  Country: MW (occurrence: MW)
  Receive Date: 20200107
  Receipt Date: 20200107
  Transmission Date: 20200409
  Serious: Yes (Other)
  Sender: FDA-Public Use
  Company Number: MW-VISTA PHARMACEUTICALS INC.-2078556

PATIENT
  Age: 46 Year
  Sex: Female

DRUGS (2)
  1. SULFAMETHOXAZOLE AND TRIMETHOPRIM [Suspect]
     Active Substance: SULFAMETHOXAZOLE\TRIMETHOPRIM
     Indication: PROPHYLAXIS
     Route: 065
  2. NEVIRAPINE. [Suspect]
     Active Substance: NEVIRAPINE
     Route: 065

REACTIONS (2)
  - Ulcerative keratitis [Unknown]
  - Uveal prolapse [Unknown]
